FAERS Safety Report 10695116 (Version 1)
Quarter: 2015Q1

REPORT INFORMATION
  Report Type: Spontaneous
  Country: US (occurrence: None)
  Receive Date: 20150106
  Receipt Date: 20150106
  Transmission Date: 20150721
  Serious: Yes (Other)
  Sender: FDA-Public Use
  Company Number: None

PATIENT
  Age: 50 Year
  Sex: Female
  Weight: 78.47 kg

DRUGS (1)
  1. LIDOCAINE 1% [Suspect]
     Active Substance: LIDOCAINE
     Indication: BIOPSY BREAST
     Dates: start: 20150102, end: 20150102

REACTIONS (1)
  - Urticaria [None]

NARRATIVE: CASE EVENT DATE: 20150102
